FAERS Safety Report 17663504 (Version 1)
Quarter: 2020Q2

REPORT INFORMATION
  Report Type: Spontaneous
  Country: US (occurrence: US)
  Receive Date: 20200413
  Receipt Date: 20200413
  Transmission Date: 20200713
  Serious: Yes (Other)
  Sender: FDA-Public Use
  Company Number: US-BEH-2020115636

PATIENT
  Sex: Female

DRUGS (25)
  1. ALPRAZOLAM. [Concomitant]
     Active Substance: ALPRAZOLAM
  2. CHLORZOXAZONE. [Concomitant]
     Active Substance: CHLORZOXAZONE
  3. FISH OIL [Concomitant]
     Active Substance: FISH OIL
  4. BIOTIN [Concomitant]
     Active Substance: BIOTIN
  5. COLLAGEN [Concomitant]
     Active Substance: COLLAGEN
  6. ESTRADIOL. [Concomitant]
     Active Substance: ESTRADIOL
  7. SUPER B-100 [AMINOBENZOIC ACID;BIOTIN;CALCIUM PANTOTHENATE;CHOLINE BIT [Concomitant]
  8. HIZENTRA [Suspect]
     Active Substance: HUMAN IMMUNOGLOBULIN G
     Dosage: UNK
     Route: 058
  9. TRAMADOL HCL [Concomitant]
     Active Substance: TRAMADOL HYDROCHLORIDE
  10. HIZENTRA [Suspect]
     Active Substance: HUMAN IMMUNOGLOBULIN G
     Dosage: UNK
     Route: 058
  11. BACLOFEN. [Concomitant]
     Active Substance: BACLOFEN
  12. CENTRUM A TO ZINC [Concomitant]
     Active Substance: MINERALS\VITAMINS
  13. DICLOFENAC [Concomitant]
     Active Substance: DICLOFENAC
  14. METHYLPRED [Concomitant]
     Active Substance: METHYLPREDNISOLONE
  15. TRIAMCINOLON [TRIAMCINOLONE] [Concomitant]
  16. CARISOPRODOL. [Concomitant]
     Active Substance: CARISOPRODOL
  17. ONDANSETRON [Concomitant]
     Active Substance: ONDANSETRON
  18. VITAMIN C [Concomitant]
     Active Substance: ASCORBIC ACID
  19. HIZENTRA [Suspect]
     Active Substance: HUMAN IMMUNOGLOBULIN G
     Indication: IMMUNODEFICIENCY COMMON VARIABLE
     Dosage: 5GM (25ML AND 5 GM (25ML)
     Route: 058
     Dates: start: 20180310
  20. VITAMIN D3 [Concomitant]
     Active Substance: CHOLECALCIFEROL
  21. PREDNISONE. [Concomitant]
     Active Substance: PREDNISONE
  22. SIMVASTATIN. [Concomitant]
     Active Substance: SIMVASTATIN
  23. GABAPENTIN. [Concomitant]
     Active Substance: GABAPENTIN
  24. L-LYSINE [LYSINE] [Concomitant]
  25. MELOXICAM. [Concomitant]
     Active Substance: MELOXICAM

REACTIONS (1)
  - Drug ineffective [Unknown]
